FAERS Safety Report 5734169-3 (Version None)
Quarter: 2008Q2

REPORT INFORMATION
  Report Type: 
  Country: None (occurrence: None)
  Receive Date: 20080509
  Receipt Date: 20080429
  Transmission Date: 20081010
  Serious: Yes (Disabling)
  Sender: FDA-Public Use
  Company Number: FR-GENENTECH-260735

PATIENT
  Age: 55 Year
  Sex: Female

DRUGS (4)
  1. MABTHERA [Suspect]
     Indication: RHEUMATOID ARTHRITIS
     Route: 042
     Dates: start: 20071001
  2. METHOTREXATE [Suspect]
     Indication: RHEUMATOID ARTHRITIS
     Dosage: UNK, 5/WEEK
     Route: 048
  3. SOLU-MEDROL [Suspect]
     Indication: PREMEDICATION
     Dosage: 100 MG, SINGLE
     Route: 042
     Dates: start: 20071001
  4. ZOMETA [Suspect]
     Indication: OSTEOPOROSIS
     Dosage: 3 MG, UNK
     Route: 042
     Dates: start: 20070906

REACTIONS (1)
  - OSTEONECROSIS [None]
